FAERS Safety Report 23017695 (Version 4)
Quarter: 2024Q2

REPORT INFORMATION
  Report Type: Report from Study
  Country: US (occurrence: US)
  Receive Date: 20231003
  Receipt Date: 20240427
  Transmission Date: 20240715
  Serious: Yes (Other)
  Sender: FDA-Public Use
  Company Number: US-002147023-NVSC2023US208068

PATIENT
  Sex: Female

DRUGS (1)
  1. KESIMPTA [Suspect]
     Active Substance: OFATUMUMAB
     Indication: Multiple sclerosis
     Dosage: 20 MG, QMO
     Route: 042

REACTIONS (15)
  - Myocardial infarction [Unknown]
  - Loss of consciousness [Unknown]
  - Influenza like illness [Unknown]
  - Pain [Unknown]
  - Sluggishness [Unknown]
  - Injection site rash [Unknown]
  - Injection site pain [Unknown]
  - Incorrect route of product administration [Unknown]
  - Product dose omission issue [Unknown]
  - Dizziness [Unknown]
  - Migraine [Unknown]
  - Illness [Unknown]
  - Dyspnoea [Unknown]
  - Chest discomfort [Unknown]
  - Therapeutic response unexpected [Unknown]
